FAERS Safety Report 9726472 (Version 1)
Quarter: 2013Q4

REPORT INFORMATION
  Report Type: Spontaneous
  Country: US (occurrence: US)
  Receive Date: 20131203
  Receipt Date: 20131203
  Transmission Date: 20140711
  Serious: No
  Sender: FDA-Public Use
  Company Number: US-BIOGENIDEC-2013BI078497

PATIENT
  Age: 66 Year
  Sex: Female

DRUGS (26)
  1. TECFIDERA [Suspect]
     Indication: MULTIPLE SCLEROSIS
     Route: 048
     Dates: start: 201307
  2. TECFIDERA [Suspect]
     Indication: MULTIPLE SCLEROSIS
     Route: 048
     Dates: start: 20130723, end: 201310
  3. TECFIDERA [Suspect]
     Indication: MULTIPLE SCLEROSIS
     Dates: start: 201308, end: 20131001
  4. VITAMIN C [Concomitant]
  5. FISH OIL [Concomitant]
  6. CALCIUM [Concomitant]
  7. NITROGLYCERIN ER [Concomitant]
  8. TYLENOL [Concomitant]
  9. RESTASIS [Concomitant]
  10. ASPIRIN [Concomitant]
  11. ACTHAR HP [Concomitant]
  12. FOSAMAX [Concomitant]
  13. MAGNESIUM [Concomitant]
  14. VITAMIN B6 [Concomitant]
  15. FOLIC ACID [Concomitant]
  16. NEXIUM [Concomitant]
  17. MIDRIN [Concomitant]
  18. FENOFIBRATE MICRONIZED [Concomitant]
  19. CYMBALTA [Concomitant]
  20. RANEXA [Concomitant]
  21. HYDROCHLOROTHIAZIDE [Concomitant]
  22. POTASSIUM CHLORIDE ER [Concomitant]
  23. MOBIC [Concomitant]
  24. LASIX [Concomitant]
  25. METOPROLOL TARTRATE [Concomitant]
  26. NEURONTIN [Concomitant]

REACTIONS (4)
  - Nausea [Recovered/Resolved]
  - Pruritus generalised [Recovered/Resolved]
  - Flushing [Recovered/Resolved]
  - Vomiting [Recovered/Resolved]
